FAERS Safety Report 5522266-7 (Version None)
Quarter: 2007Q4

REPORT INFORMATION
  Report Type: 
  Country: None (occurrence: None)
  Receive Date: 20071120
  Receipt Date: 20071108
  Transmission Date: 20080405
  Serious: Yes (Other)
  Sender: FDA-Public Use
  Company Number: CA-ELI_LILLY_AND_COMPANY-CA200706005436

PATIENT
  Age: 67 Year
  Sex: Female
  Weight: 56.235 kg

DRUGS (5)
  1. FORTEO [Suspect]
     Indication: OSTEOPOROSIS
     Dosage: 20 UG, DAILY (1/D)
     Route: 058
     Dates: start: 20070105, end: 20070501
  2. IMIPRAMINE [Concomitant]
  3. RISPERDAL [Concomitant]
  4. ALENDRONATE SODIUM [Concomitant]
     Dosage: 70 MG, WEEKLY (1/W)
  5. ZESTORETIC [Concomitant]

REACTIONS (1)
  - MULTIPLE MYELOMA [None]
